FAERS Safety Report 6534055-5 (Version None)
Quarter: 2010Q1

REPORT INFORMATION
  Report Type: 
  Country: None (occurrence: None)
  Receive Date: 20100112
  Receipt Date: 20100106
  Transmission Date: 20100710
  Serious: Yes (Other)
  Sender: FDA-Public Use
  Company Number: NL-ASTRAZENECA-2010SE00527

PATIENT

DRUGS (1)
  1. SYMBICORT [Suspect]
     Dosage: TWO INHALATIONS PER DAY
     Route: 055

REACTIONS (2)
  - DISTURBANCE IN ATTENTION [None]
  - NERVOUSNESS [None]
